FAERS Safety Report 6269777-7 (Version None)
Quarter: 2009Q3

REPORT INFORMATION
  Report Type: 
  Country: None (occurrence: None)
  Receive Date: 20090716
  Receipt Date: 20090709
  Transmission Date: 20100115
  Serious: Yes (Other)
  Sender: FDA-Public Use
  Company Number: US-ASTRAZENECA-2009UW13451

PATIENT
  Age: 53 Year
  Sex: Male
  Weight: 112.9 kg

DRUGS (2)
  1. SEROQUEL [Suspect]
     Indication: DEPRESSION
     Route: 048
     Dates: start: 20020320, end: 20050101
  2. SEROQUEL [Suspect]
     Indication: INSOMNIA
     Route: 048
     Dates: start: 20020320, end: 20050101

REACTIONS (3)
  - CARDIAC DISORDER [None]
  - OBESITY [None]
  - TYPE 1 DIABETES MELLITUS [None]
